FAERS Safety Report 10503149 (Version 2)
Quarter: 2014Q4

REPORT INFORMATION
  Report Type: Report from Study
  Country: MX (occurrence: MX)
  Receive Date: 20141007
  Receipt Date: 20141219
  Transmission Date: 20150528
  Serious: Yes (Other)
  Sender: FDA-Public Use
  Company Number: PHHY2014MX130674

PATIENT
  Age: 96 Year
  Sex: Female

DRUGS (8)
  1. CO-DIOVAN [Suspect]
     Active Substance: HYDROCHLOROTHIAZIDE\VALSARTAN
     Indication: HYPERTENSION
     Dosage: 1 DF, DAILY
     Route: 048
  2. CO-DIOVAN [Suspect]
     Active Substance: HYDROCHLOROTHIAZIDE\VALSARTAN
     Indication: CARDIOVASCULAR DISORDER
     Dosage: 0.5 DF, DAILY
     Route: 048
     Dates: start: 20140909
  3. SELOKEN ZOK [Concomitant]
     Indication: PRODUCT USED FOR UNKNOWN INDICATION
     Dosage: 0.5 DF, QD (AT NOON)
     Route: 065
     Dates: start: 20140909
  4. NOOTROPIL [Concomitant]
     Active Substance: PIRACETAM
     Indication: VEIN DISORDER
     Dosage: 1 DF, DAILY
     Route: 065
     Dates: start: 20140909
  5. ASPIRIN PROTECT [Concomitant]
     Active Substance: ASPIRIN
     Indication: PRODUCT USED FOR UNKNOWN INDICATION
     Dosage: 1 DF, QD (AT NIGHT)
     Route: 065
     Dates: start: 20140909
  6. ATIVAN [Concomitant]
     Active Substance: LORAZEPAM
     Indication: RELAXATION THERAPY
     Dosage: 1 DF, UNK
     Route: 065
     Dates: start: 20140909
  7. NORFENON [Concomitant]
     Indication: ANTICOAGULANT THERAPY
     Dosage: 2 DF, DAILY
     Route: 065
     Dates: start: 20140909
  8. GENOPRAZOL [Concomitant]
     Indication: GASTRITIS
     Dosage: 1 DF, DAILY
     Route: 065
     Dates: start: 20140909

REACTIONS (2)
  - Arrhythmia [Unknown]
  - Wrong technique in drug usage process [Not Recovered/Not Resolved]

NARRATIVE: CASE EVENT DATE: 20140909
